FAERS Safety Report 14089502 (Version 3)
Quarter: 2017Q4

REPORT INFORMATION
  Report Type: Spontaneous
  Country: US (occurrence: US)
  Receive Date: 20171013
  Receipt Date: 20171205
  Transmission Date: 20180321
  Serious: Yes (Hospitalization)
  Sender: FDA-Public Use
  Company Number: US-CELGENEUS-USA-20171003517

PATIENT
  Age: 47 Year
  Sex: Female

DRUGS (2)
  1. REVLIMID [Suspect]
     Active Substance: LENALIDOMIDE
     Indication: PLASMA CELL MYELOMA
     Dosage: 25 MILLIGRAM
     Route: 048
     Dates: start: 20170727, end: 20171112
  2. REVLIMID [Suspect]
     Active Substance: LENALIDOMIDE
     Indication: NEOPLASM MALIGNANT

REACTIONS (2)
  - Diarrhoea [Unknown]
  - Blood potassium decreased [Recovering/Resolving]

NARRATIVE: CASE EVENT DATE: 20171010
